FAERS Safety Report 8999150 (Version 1)
Quarter: 2013Q1

REPORT INFORMATION
  Report Type: Report from Study
  Country: CA (occurrence: CA)
  Receive Date: 20130103
  Receipt Date: 20130103
  Transmission Date: 20140127
  Serious: Yes (Other)
  Sender: FDA-Public Use
  Company Number: CA-JNJFOC-20121213709

PATIENT
  Age: 57 Year
  Sex: Male
  Weight: 92 kg

DRUGS (4)
  1. REMICADE [Suspect]
     Indication: COLITIS ULCERATIVE
     Route: 042
     Dates: start: 20120717
  2. ATORVASTATIN [Concomitant]
     Route: 065
  3. ASACOL [Concomitant]
     Route: 065
  4. IMURAN [Concomitant]
     Route: 065

REACTIONS (1)
  - Squamous cell carcinoma of skin [Recovering/Resolving]
